FAERS Safety Report 5803220-4 (Version None)
Quarter: 2008Q3

REPORT INFORMATION
  Report Type: 
  Country: None (occurrence: None)
  Receive Date: 20080708
  Receipt Date: 20080702
  Transmission Date: 20090109
  Serious: Yes (Life-Threatening)
  Sender: FDA-Public Use
  Company Number: GB-BRISTOL-MYERS SQUIBB COMPANY-14251953

PATIENT
  Sex: Female

DRUGS (1)
  1. MITOMYCIN [Suspect]
     Indication: BLADDER CANCER
     Dosage: INJ
     Route: 040
     Dates: start: 20070926, end: 20070926

REACTIONS (1)
  - PANCYTOPENIA [None]
